FAERS Safety Report 21148693 (Version 3)
Quarter: 2024Q1

REPORT INFORMATION
  Report Type: Report from Study
  Country: JP (occurrence: JP)
  Receive Date: 20220729
  Receipt Date: 20240112
  Transmission Date: 20240409
  Serious: No
  Sender: FDA-Public Use
  Company Number: JP-TAKEDA-2022TJP028025

PATIENT
  Age: 68 Year
  Sex: Male

DRUGS (4)
  1. LEUPROLIDE ACETATE [Suspect]
     Active Substance: LEUPROLIDE ACETATE
     Indication: Bulbospinal muscular atrophy congenital
     Dosage: 11.25 MILLIGRAM, Q3MONTHS
     Route: 058
     Dates: start: 20180705
  2. AZUNOL [Concomitant]
     Indication: Bulbospinal muscular atrophy congenital
     Dosage: 2 DOSAGE FORM
     Route: 065
     Dates: start: 20200517, end: 20200806
  3. ENORAS [Concomitant]
     Indication: Feeding disorder
     Dosage: 187.5 MILLILITER
     Route: 065
     Dates: start: 20191224
  4. PENTOSAN POLYSULFATE SODIUM [Concomitant]
     Active Substance: PENTOSAN POLYSULFATE SODIUM
     Indication: Bulbospinal muscular atrophy congenital
     Dosage: 2 DOSAGE FORM
     Route: 065
     Dates: start: 20200517, end: 20200806

REACTIONS (2)
  - Bulbospinal muscular atrophy congenital [Not Recovered/Not Resolved]
  - Condition aggravated [Not Recovered/Not Resolved]

NARRATIVE: CASE EVENT DATE: 20191224
